FAERS Safety Report 9399414 (Version 1)
Quarter: 2013Q3

REPORT INFORMATION
  Report Type: Spontaneous
  Country: US (occurrence: US)
  Receive Date: 20130715
  Receipt Date: 20130715
  Transmission Date: 20140515
  Serious: No
  Sender: FDA-Public Use
  Company Number: US-009507513-1306USA000949

PATIENT
  Age: 19 Year
  Sex: Female
  Weight: 74.1 kg

DRUGS (1)
  1. IMPLANON [Suspect]
     Dosage: 68 MG/3 YEAR IMPLANT
     Route: 059
     Dates: start: 20110808, end: 20130530

REACTIONS (4)
  - Metrorrhagia [Unknown]
  - Weight increased [Unknown]
  - Device breakage [Unknown]
  - Device kink [Unknown]
